FAERS Safety Report 22205608 (Version 2)
Quarter: 2023Q2

REPORT INFORMATION
  Report Type: Other
  Country: JP (occurrence: JP)
  Receive Date: 20230413
  Receipt Date: 20230418
  Transmission Date: 20230722
  Serious: Yes (Hospitalization, Other)
  Sender: FDA-Public Use
  Company Number: JP-CHUGAI-2022020873

PATIENT
  Age: 56 Year
  Sex: Male
  Weight: 51.3 kg

DRUGS (8)
  1. BEVACIZUMAB [Suspect]
     Active Substance: BEVACIZUMAB
     Indication: Non-small cell lung cancer
     Dosage: 770 MILLIGRAM
     Route: 041
     Dates: start: 20220202
  2. BEVACIZUMAB [Suspect]
     Active Substance: BEVACIZUMAB
     Dosage: 760 MILLIGRAM
     Route: 041
  3. BEVACIZUMAB [Suspect]
     Active Substance: BEVACIZUMAB
     Dosage: 798 MILLIGRAM
     Route: 041
     Dates: start: 20220502, end: 20230116
  4. ATEZOLIZUMAB [Suspect]
     Active Substance: ATEZOLIZUMAB
     Indication: Non-small cell lung cancer
     Dosage: 1200 MILLIGRAM
     Route: 041
     Dates: start: 20220202
  5. ATEZOLIZUMAB [Suspect]
     Active Substance: ATEZOLIZUMAB
     Dosage: 1200 MILLIGRAM
     Route: 041
     Dates: start: 20220502, end: 20230116
  6. CARBOPLATIN [Suspect]
     Active Substance: CARBOPLATIN
     Indication: Non-small cell lung cancer
     Route: 041
     Dates: start: 20220202
  7. CARBOPLATIN [Suspect]
     Active Substance: CARBOPLATIN
     Dosage: 710 MILLIGRAM, MOST RECENT DOSE ADMINISTERED ON 02/MAY/2022
     Route: 041
     Dates: start: 20220502, end: 20220502
  8. PACLITAXEL [Suspect]
     Active Substance: PACLITAXEL
     Indication: Non-small cell lung cancer
     Dosage: 270 MILLIGRAM, MOST RECENT DOSE ADMINISTERED ON 02/MAY/2022
     Route: 041
     Dates: start: 20220202

REACTIONS (5)
  - Tumour necrosis [Unknown]
  - Pneumonia bacterial [Recovering/Resolving]
  - Pneumonia [Recovered/Resolved]
  - COVID-19 [Recovered/Resolved]
  - Adrenal insufficiency [Recovering/Resolving]

NARRATIVE: CASE EVENT DATE: 20220303
